FAERS Safety Report 9358084 (Version 1)
Quarter: 2013Q2

REPORT INFORMATION
  Report Type: Spontaneous
  Country: US (occurrence: US)
  Receive Date: 20130620
  Receipt Date: 20130620
  Transmission Date: 20140414
  Serious: Yes (Hospitalization)
  Sender: FDA-Public Use
  Company Number: US-BAYER-2013-072838

PATIENT
  Age: 33 Year
  Sex: Female

DRUGS (17)
  1. BEYAZ [Suspect]
  2. YAZ [Suspect]
  3. YASMIN [Suspect]
  4. VALTREX [Concomitant]
     Dosage: UNK
     Dates: start: 20101105
  5. PRENATAL [Concomitant]
  6. LEXAPRO [Concomitant]
     Dosage: UNK
     Dates: start: 20101105
  7. NEXIUM [Concomitant]
     Dosage: UNK
     Dates: start: 20101105
  8. FLONASE [Concomitant]
  9. CLARITIN-D [Concomitant]
  10. AMBIEN [Concomitant]
     Dosage: UNK
     Dates: start: 20101105
  11. CLARITIN [Concomitant]
     Dosage: UNK
     Dates: start: 20101105
  12. XANAX [Concomitant]
     Dosage: UNK
     Dates: start: 20101105
  13. PERCOCET [Concomitant]
     Dosage: UNK
     Dates: start: 20101105
  14. SOMA [Concomitant]
     Dosage: UNK
     Dates: start: 20101105
  15. NASONEX [Concomitant]
     Dosage: UNK
     Dates: start: 20101105
  16. PROBIOTICA [Concomitant]
  17. DOXYCYCLINE [Concomitant]

REACTIONS (1)
  - Pulmonary embolism [None]
